FAERS Safety Report 9888223 (Version 1)
Quarter: 2014Q1

REPORT INFORMATION
  Report Type: Spontaneous
  Country: US (occurrence: None)
  Receive Date: 20140210
  Receipt Date: 20140210
  Transmission Date: 20141002
  Serious: No
  Sender: FDA-Public Use
  Company Number: None

PATIENT
  Age: 84 Year
  Sex: Male
  Weight: 68.04 kg

DRUGS (3)
  1. POMALYST [Suspect]
     Indication: PLASMA CELL MYELOMA
     Route: 048
     Dates: start: 20140201, end: 20140204
  2. POMALYST [Suspect]
     Indication: BLOOD DISORDER
     Route: 048
     Dates: start: 20140201, end: 20140204
  3. POMALYST [Suspect]
     Indication: NEOPLASM MALIGNANT
     Route: 048
     Dates: start: 20140201, end: 20140204

REACTIONS (9)
  - Back pain [None]
  - Bone pain [None]
  - Myalgia [None]
  - Gastrointestinal pain [None]
  - Constipation [None]
  - Asthenia [None]
  - Hypoaesthesia [None]
  - Hypoaesthesia [None]
  - Paraesthesia [None]
